FAERS Safety Report 7945243-5 (Version None)
Quarter: 2011Q4

REPORT INFORMATION
  Report Type: 
  Country: None (occurrence: None)
  Receive Date: 20111129
  Receipt Date: 20110725
  Transmission Date: 20120403
  Serious: No
  Sender: FDA-Public Use
  Company Number: US-GLAXOSMITHKLINE-A0938187A

PATIENT
  Age: 87 Year
  Sex: Male

DRUGS (2)
  1. BLOOD PRESSURE MEDICATION [Concomitant]
  2. FLOVENT [Suspect]
     Indication: ILL-DEFINED DISORDER
     Dosage: 1PUFF TWICE PER DAY
     Route: 055
     Dates: start: 20110714

REACTIONS (1)
  - CONSTIPATION [None]
